FAERS Safety Report 18001011 (Version 1)
Quarter: 2020Q3

REPORT INFORMATION
  Report Type: Spontaneous
  Country: CA (occurrence: CA)
  Receive Date: 20200709
  Receipt Date: 20200709
  Transmission Date: 20201103
  Serious: Yes (Hospitalization, Other)
  Sender: FDA-Public Use
  Company Number: CA-TEVA-2020-CA-1798172

PATIENT
  Sex: Female

DRUGS (2)
  1. PACLITAXEL INJECTION [Suspect]
     Active Substance: PACLITAXEL
     Indication: BREAST CANCER FEMALE
     Route: 042
  2. GRANULOCYTE COLONY STIMULATING FACTOR(G?CSF) [Suspect]
     Active Substance: GRANULOCYTE COLONY-STIMULATING FACTOR NOS
     Indication: PRODUCT USED FOR UNKNOWN INDICATION
     Route: 065

REACTIONS (24)
  - Abdominal pain upper [Unknown]
  - Hepatic steatosis [Unknown]
  - Arthralgia [Unknown]
  - Bone pain [Unknown]
  - Sinus tachycardia [Unknown]
  - Urinary tract infection [Unknown]
  - Contusion [Unknown]
  - Hyperhidrosis [Unknown]
  - Myalgia [Unknown]
  - Pollakiuria [Unknown]
  - Pyrexia [Unknown]
  - Joint swelling [Unknown]
  - Mass [Unknown]
  - Pain in extremity [Unknown]
  - Decreased appetite [Unknown]
  - Dysuria [Unknown]
  - Dysgeusia [Unknown]
  - Leukocytosis [Unknown]
  - Nausea [Unknown]
  - Peripheral swelling [Unknown]
  - Urine odour abnormal [Unknown]
  - Accidental overdose [Unknown]
  - Dry skin [Unknown]
  - Sepsis [Unknown]
